FAERS Safety Report 8661975 (Version 2)
Quarter: 2013Q4

REPORT INFORMATION
  Report Type: Spontaneous
  Country: JP (occurrence: JP)
  Receive Date: 20120712
  Receipt Date: 20131105
  Transmission Date: 20140711
  Serious: Yes (Disabling, Other)
  Sender: FDA-Public Use
  Company Number: JP-009507513-1207JPN000630

PATIENT
  Age: 60 Year
  Sex: Female

DRUGS (2)
  1. JANUVIA TABLETS 50MG [Suspect]
     Indication: DIABETES MELLITUS
     Dosage: 50 MG, UNK
     Route: 048
     Dates: start: 20110223, end: 20111105
  2. NESINA [Suspect]
     Indication: DIABETES MELLITUS
     Dosage: 25 MG, QD
     Route: 048

REACTIONS (3)
  - Rheumatoid arthritis [Not Recovered/Not Resolved]
  - Eosinophilia [Not Recovered/Not Resolved]
  - Extremity necrosis [Unknown]
